FAERS Safety Report 24432858 (Version 2)
Quarter: 2024Q4

REPORT INFORMATION
  Report Type: Report from Study
  Country: US (occurrence: US)
  Receive Date: 20241014
  Receipt Date: 20241021
  Transmission Date: 20250114
  Serious: Yes (Death)
  Sender: PFIZER
  Company Number: US-PFIZER INC-PV202400132012

PATIENT
  Age: 68 Year
  Sex: Female
  Weight: 57.596 kg

DRUGS (3)
  1. OXBRYTA [Suspect]
     Active Substance: VOXELOTOR
     Dosage: 500 MG, DAILY, UNIT: 2
     Dates: start: 20200612
  2. BUMETANIDE [Concomitant]
     Active Substance: BUMETANIDE
     Indication: Diuretic therapy
     Dosage: 2 MG
     Route: 048
     Dates: start: 20210113
  3. ALLOPURINOL [Concomitant]
     Active Substance: ALLOPURINOL
     Indication: Blood uric acid increased
     Dosage: 100 MG
     Route: 048
     Dates: start: 20201205

REACTIONS (1)
  - Azotaemia [Fatal]

NARRATIVE: CASE EVENT DATE: 20210501
